FAERS Safety Report 24982353 (Version 1)
Quarter: 2025Q1

REPORT INFORMATION
  Report Type: Spontaneous
  Country: DE (occurrence: DE)
  Receive Date: 20250218
  Receipt Date: 20250218
  Transmission Date: 20250409
  Serious: Yes (Death, Other)
  Sender: GILEAD
  Company Number: DE-GILEAD-2025-0703935

PATIENT
  Sex: Female

DRUGS (1)
  1. TRODELVY [Suspect]
     Active Substance: SACITUZUMAB GOVITECAN-HZIY
     Indication: Product used for unknown indication
     Route: 065

REACTIONS (7)
  - Metastases to spine [Fatal]
  - Metastases to central nervous system [Fatal]
  - Pathogen resistance [Unknown]
  - Headache [Unknown]
  - Nausea [Unknown]
  - Somnolence [Unknown]
  - Back pain [Unknown]

NARRATIVE: CASE EVENT DATE: 20241001
